FAERS Safety Report 18782822 (Version 1)
Quarter: 2021Q1

REPORT INFORMATION
  Report Type: Spontaneous
  Country: ES (occurrence: ES)
  Receive Date: 20210125
  Receipt Date: 20210125
  Transmission Date: 20210419
  Serious: Yes (Other)
  Sender: FDA-Public Use
  Company Number: ES-TEVA-2021-ES-1872375

PATIENT
  Age: 46 Year
  Sex: Female

DRUGS (7)
  1. CONYOD ? CONTRASTE YODADO [IODINE I?125] [Suspect]
     Active Substance: IODINE I-125
     Indication: SCAN WITH CONTRAST
     Route: 042
     Dates: start: 20200124, end: 20200124
  2. CLOPIDOGREL [Concomitant]
     Active Substance: CLOPIDOGREL BISULFATE
     Indication: PROPHYLAXIS
     Dosage: 75MILLIGRAM
     Route: 048
     Dates: start: 20200118
  3. ENOXAPARINA SODICA (2482SO) [Concomitant]
     Active Substance: ENOXAPARIN SODIUM
     Indication: PROPHYLAXIS
     Dosage: 20MILLIGRAM
     Route: 058
     Dates: start: 20200122
  4. FLUCONAZOL (2432A) [Suspect]
     Active Substance: FLUCONAZOLE
     Indication: INFECTION
     Dosage: 100MILLIGRAM
     Route: 048
     Dates: start: 20200123, end: 20200123
  5. FITOMENADIONA (1553A) [Concomitant]
     Active Substance: PHYTONADIONE
     Indication: DRUG LEVEL INCREASED
     Dosage: 2MILLIGRAM
     Route: 042
     Dates: start: 20200119, end: 20200119
  6. HIDRALAZINA HIDROCLORURO (1720CH) [Suspect]
     Active Substance: HYDRALAZINE HYDROCHLORIDE
     Indication: HYPERTENSION
     Dosage: 12.5MILLIGRAM
     Route: 048
     Dates: start: 20200120, end: 20200127
  7. ACETILSALICILICO ACIDO (176A) [Concomitant]
     Active Substance: ASPIRIN
     Indication: PROPHYLAXIS
     Dosage: 100MILLIGRAM
     Route: 048
     Dates: start: 20200118

REACTIONS (1)
  - Symmetrical drug-related intertriginous and flexural exanthema [Recovered/Resolved]

NARRATIVE: CASE EVENT DATE: 20200124
